FAERS Safety Report 25465590 (Version 1)
Quarter: 2025Q2

REPORT INFORMATION
  Report Type: Spontaneous
  Country: IT (occurrence: IT)
  Receive Date: 20250623
  Receipt Date: 20250623
  Transmission Date: 20250716
  Serious: Yes (Life-Threatening, Hospitalization, Other)
  Sender: MERCK SHARP & DOHME LLC
  Company Number: None

PATIENT
  Age: 72 Year
  Sex: Female

DRUGS (1)
  1. KEYTRUDA [Suspect]
     Active Substance: PEMBROLIZUMAB
     Indication: Lung adenocarcinoma stage IV
     Dosage: 200 MG EVERY 21 DAYS, ASSOCIATED WITH CT WITH PLATINOID AND PEMETREXED FOR 4 CYCLES, THEN WITH PE...
     Route: 042
     Dates: start: 20231127, end: 20250210

REACTIONS (4)
  - Respiratory failure [Recovering/Resolving]
  - Pyrexia [Recovered/Resolved]
  - Autoimmune lung disease [Recovering/Resolving]
  - Immune-mediated hypothyroidism [Recovered/Resolved with Sequelae]

NARRATIVE: CASE EVENT DATE: 20240810
